FAERS Safety Report 5883681-5 (Version None)
Quarter: 2008Q3

REPORT INFORMATION
  Report Type: 
  Country: None (occurrence: None)
  Receive Date: 20080912
  Receipt Date: 20080912
  Transmission Date: 20090109
  Serious: Yes (Other)
  Sender: FDA-Public Use
  Company Number: None

PATIENT
  Age: 21 Month
  Sex: Male
  Weight: 10.8863 kg

DRUGS (2)
  1. SINGULAIR [Suspect]
     Indication: FOOD ALLERGY
     Dosage: CONTENTS OF PACKAGE 4MG DAILY AT BEDTIME PO
     Route: 048
     Dates: start: 20080828, end: 20080909
  2. SINGULAIR [Suspect]
     Indication: HOUSE DUST ALLERGY
     Dosage: CONTENTS OF PACKAGE 4MG DAILY AT BEDTIME PO
     Route: 048
     Dates: start: 20080828, end: 20080909

REACTIONS (13)
  - ABNORMAL BEHAVIOUR [None]
  - AGGRESSION [None]
  - ANXIETY [None]
  - CRYING [None]
  - FEAR [None]
  - HALLUCINATION [None]
  - MENTAL DISORDER [None]
  - PANIC REACTION [None]
  - SCREAMING [None]
  - SLEEP DISORDER [None]
  - SLEEP TERROR [None]
  - SPEECH DISORDER [None]
  - TENSION [None]
